FAERS Safety Report 16992785 (Version 1)
Quarter: 2019Q4

REPORT INFORMATION
  Report Type: Spontaneous
  Country: FR (occurrence: FR)
  Receive Date: 20191105
  Receipt Date: 20191105
  Transmission Date: 20200122
  Serious: Yes (Other)
  Sender: FDA-Public Use
  Company Number: FR-UCBSA-2019045603

PATIENT
  Age: 29 Year
  Sex: Female

DRUGS (2)
  1. CIMZIA [Suspect]
     Active Substance: CERTOLIZUMAB PEGOL
     Indication: ANKYLOSING SPONDYLITIS
     Dosage: UNK
     Route: 058
     Dates: start: 2017
  2. KETOPROFENE [KETOPROFEN] [Concomitant]
     Active Substance: KETOPROFEN
     Indication: PRODUCT USED FOR UNKNOWN INDICATION

REACTIONS (3)
  - Paradoxical drug reaction [Not Recovered/Not Resolved]
  - Psoriasis [Not Recovered/Not Resolved]
  - Pustular psoriasis [Not Recovered/Not Resolved]

NARRATIVE: CASE EVENT DATE: 201908
